FAERS Safety Report 7656321-2 (Version None)
Quarter: 2011Q3

REPORT INFORMATION
  Report Type: 
  Country: None (occurrence: None)
  Receive Date: 20110804
  Receipt Date: 20110726
  Transmission Date: 20111222
  Serious: Yes (Hospitalization, Other)
  Sender: FDA-Public Use
  Company Number: FR-ROCHE-695726

PATIENT
  Sex: Female
  Weight: 83.7 kg

DRUGS (11)
  1. NEBIVOLOL HCL [Concomitant]
     Dates: start: 20100304
  2. BEVACIZUMAB [Suspect]
     Route: 042
     Dates: start: 20100712
  3. NOCTAMIDE [Concomitant]
     Dates: start: 19950301
  4. SOTALOL HCL [Concomitant]
     Dates: start: 19950301
  5. DOCETAXEL [Suspect]
     Dosage: FORM: INFUSION, LAST DOSE PRIOR TO SAE: 15 APRIL 2010.
     Route: 042
     Dates: start: 20100304
  6. DOCETAXEL [Suspect]
     Dosage: LAST DOESE PRIOR TO SAE : 25 MARCH 2010; DOSE FORM : INFUSION
     Route: 042
     Dates: start: 20100304
  7. OMEPRAZOLE [Concomitant]
     Dates: start: 20100315
  8. BEVACIZUMAB [Suspect]
     Route: 042
     Dates: end: 20101227
  9. FOSINOPRIL SODIUM [Concomitant]
     Dates: start: 20100302
  10. BEVACIZUMAB [Suspect]
     Dosage: FORM: INFUSION, LAST DOSE PRIOR TO SAE: 15 APRIL 2010
     Route: 042
     Dates: start: 20100304
  11. ACETAMINOPHEN [Concomitant]
     Dates: start: 20100315

REACTIONS (4)
  - BACK PAIN [None]
  - NEUTROPENIA [None]
  - GAMMA-GLUTAMYLTRANSFERASE INCREASED [None]
  - DECREASED APPETITE [None]
